FAERS Safety Report 7024929-3 (Version None)
Quarter: 2010Q4

REPORT INFORMATION
  Report Type: 
  Country: None (occurrence: None)
  Receive Date: 20101001
  Receipt Date: 20100920
  Transmission Date: 20110411
  Serious: Yes (Other)
  Sender: FDA-Public Use
  Company Number: US-PFIZER INC-2010119916

PATIENT
  Sex: Female
  Weight: 39 kg

DRUGS (4)
  1. GENOTROPIN [Suspect]
     Indication: TURNER'S SYNDROME
     Dosage: 2.0 MG, DAILY
     Route: 058
     Dates: start: 20000101
  2. CLARITIN [Concomitant]
     Indication: HYPERSENSITIVITY
     Dosage: UNK
  3. CLARITIN [Concomitant]
     Indication: SINUSITIS
  4. LEVOTHYROXINE [Concomitant]
     Dosage: UNK

REACTIONS (3)
  - AGGRESSION [None]
  - ANGER [None]
  - HYPERVIGILANCE [None]
